FAERS Safety Report 8813609 (Version 1)
Quarter: 2012Q4

REPORT INFORMATION
  Report Type: 
  Country: US (occurrence: US)
  Receive Date: 20120927
  Receipt Date: 20120927
  Transmission Date: 20130627
  Serious: Yes (Hospitalization, Other)
  Sender: FDA-Public Use
  Company Number: US-MILLENNIUM PHARMACEUTICALS, INC.-2012-06595

PATIENT
  Sex: Female
  Weight: 89.8 kg

DRUGS (5)
  1. VELCADE [Suspect]
     Indication: MULTIPLE MYELOMA
     Dosage: 2.8 mg, UNK
     Dates: start: 201109
  2. HALOPERIDOL                        /00027402/ [Concomitant]
     Indication: SCHIZOPHRENIA, PARANOID TYPE
  3. DECADRON /00016001/ [Concomitant]
     Indication: PRODUCT USED FOR UNKNOWN INDICATION
  4. ISENTRESS [Concomitant]
     Indication: PRODUCT USED FOR UNKNOWN INDICATION
  5. TRUVADA                            /01398801/ [Concomitant]
     Indication: PRODUCT USED FOR UNKNOWN INDICATION

REACTIONS (2)
  - HIV test positive [Recovering/Resolving]
  - Hepatic failure [Recovering/Resolving]
